FAERS Safety Report 20746379 (Version 2)
Quarter: 2022Q2

REPORT INFORMATION
  Report Type: Report from Study
  Country: BR (occurrence: BR)
  Receive Date: 20220425
  Receipt Date: 20220610
  Transmission Date: 20220720
  Serious: Yes (Other)
  Sender: FDA-Public Use
  Company Number: BR-NOVARTISPH-NVSC2022BR094445

PATIENT
  Sex: Male

DRUGS (1)
  1. ENTRESTO [Suspect]
     Active Substance: SACUBITRIL\VALSARTAN
     Indication: Product used for unknown indication
     Dosage: 1 DOSAGE FORM, BID (1 IN THE MORNING AND 1 IN THE AFTERNOON)
     Route: 048
     Dates: start: 20191206, end: 20220419

REACTIONS (7)
  - Diabetes mellitus [Unknown]
  - Immunodeficiency [Unknown]
  - Cardiac disorder [Unknown]
  - Lung disorder [Unknown]
  - Blood pressure fluctuation [Unknown]
  - Blood pressure abnormal [Unknown]
  - Agitation [Unknown]
